FAERS Safety Report 19653234 (Version 1)
Quarter: 2021Q3

REPORT INFORMATION
  Report Type: Spontaneous
  Country: RU (occurrence: RU)
  Receive Date: 20210803
  Receipt Date: 20210803
  Transmission Date: 20211014
  Serious: Yes (Other)
  Sender: FDA-Public Use
  Company Number: RU-ASTRAZENECA-2021A648724

PATIENT
  Age: 32 Year
  Sex: Female

DRUGS (5)
  1. TAMOXIFEN [Concomitant]
     Active Substance: TAMOXIFEN
     Dates: start: 201605, end: 201905
  2. OLAPARIB. [Suspect]
     Active Substance: OLAPARIB
     Indication: HER2 NEGATIVE BREAST CANCER
     Route: 048
     Dates: start: 20201115
  3. FULVESTRANT. [Suspect]
     Active Substance: FULVESTRANT
     Indication: HER2 NEGATIVE BREAST CANCER
     Route: 030
     Dates: start: 202007
  4. GOSERELIN [Suspect]
     Active Substance: GOSERELIN
     Indication: HER2 NEGATIVE BREAST CANCER
     Route: 058
     Dates: start: 201909
  5. LUTEINISING HORMONE RELEASING HORMONE (LHRH) ANALOGUES [Concomitant]
     Dates: start: 201605, end: 201905

REACTIONS (6)
  - Lymphadenopathy [Recovering/Resolving]
  - Nausea [Recovered/Resolved]
  - Malignant neoplasm progression [Recovering/Resolving]
  - Metastases to liver [Recovering/Resolving]
  - Bone lesion [Recovering/Resolving]
  - Pain [Recovered/Resolved]
